FAERS Safety Report 15624290 (Version 1)
Quarter: 2018Q4

REPORT INFORMATION
  Report Type: Spontaneous
  Country: US (occurrence: US)
  Receive Date: 20181116
  Receipt Date: 20181116
  Transmission Date: 20190205
  Serious: Yes (Other)
  Sender: FDA-Public Use
  Company Number: US-TEVA-2018-US-973602

PATIENT
  Age: 71 Year
  Sex: Female

DRUGS (4)
  1. MIRTAZAPINE. [Suspect]
     Active Substance: MIRTAZAPINE
     Dates: start: 20181028, end: 20181101
  2. METOPROLOL. [Concomitant]
     Active Substance: METOPROLOL
  3. MIRTAZAPINE. [Suspect]
     Active Substance: MIRTAZAPINE
     Indication: SLEEP DISORDER
     Route: 048
     Dates: start: 20181028, end: 20181101
  4. PROCAINAMIDE [Concomitant]
     Active Substance: PROCAINAMIDE HYDROCHLORIDE

REACTIONS (3)
  - Dizziness [Unknown]
  - Atrial fibrillation [Unknown]
  - Palpitations [Unknown]

NARRATIVE: CASE EVENT DATE: 20181029
